FAERS Safety Report 20040503 (Version 1)
Quarter: 2021Q4

REPORT INFORMATION
  Report Type: Spontaneous
  Country: US (occurrence: None)
  Receive Date: 20211105
  Receipt Date: 20211105
  Transmission Date: 20220303
  Serious: Yes (Other)
  Sender: FDA-Public Use
  Company Number: None

PATIENT
  Sex: Female

DRUGS (1)
  1. TRIUMEQ [Suspect]
     Active Substance: ABACAVIR SULFATE\DOLUTEGRAVIR SODIUM\LAMIVUDINE
     Indication: HIV infection
     Dosage: OTHER QUANTITY : 600/50/300;?FREQUENCY : DAILY;?
     Route: 048
     Dates: start: 20191101

REACTIONS (3)
  - Insomnia [None]
  - Fatigue [None]
  - Quality of life decreased [None]
